FAERS Safety Report 24624543 (Version 1)
Quarter: 2024Q4

REPORT INFORMATION
  Report Type: Spontaneous
  Country: RU (occurrence: RU)
  Receive Date: 20241115
  Receipt Date: 20241115
  Transmission Date: 20250115
  Serious: Yes (Life-Threatening)
  Sender: BAYER HEALTHCARE PHARMACEUTICALS INC.
  Company Number: RU-BAYER-2024A163170

PATIENT
  Age: 26 Year
  Sex: Male
  Weight: 61 kg

DRUGS (10)
  1. ULTRAVIST [Suspect]
     Active Substance: IOPROMIDE
     Indication: Angiogram
     Dosage: 100 ML, ONCE
     Route: 014
     Dates: start: 20241101, end: 20241101
  2. SEVOFLURANE [Suspect]
     Active Substance: SEVOFLURANE
     Indication: General anaesthesia
     Dosage: UNK
     Dates: start: 20241101, end: 20241101
  3. ULTRAVIST [Suspect]
     Active Substance: IOPROMIDE
     Indication: Angiogram
     Dosage: 5 ML, ONCE
     Route: 014
     Dates: start: 20241101, end: 20241101
  4. CEFUROXIME [Concomitant]
     Active Substance: CEFUROXIME
     Dosage: 1.5 G, ONCE
     Route: 041
     Dates: start: 20241101, end: 20241101
  5. PROPOFOL [Concomitant]
     Active Substance: PROPOFOL
     Indication: Induction of anaesthesia
     Dosage: 200 MG
     Route: 040
     Dates: start: 20241101, end: 20241101
  6. FENTANYL [Concomitant]
     Active Substance: FENTANYL
     Dosage: 10 ML
     Route: 041
     Dates: start: 20241101, end: 20241101
  7. ROCURONIUM BROMIDE [Concomitant]
     Active Substance: ROCURONIUM BROMIDE
     Dosage: 40 MG
     Route: 041
     Dates: start: 20241101, end: 20241101
  8. NOREPINEPHRINE [Concomitant]
     Active Substance: NOREPINEPHRINE\NOREPINEPHRINE BITARTRATE
     Dosage: 0.25 MCG/KG
     Route: 041
     Dates: start: 20241101, end: 20241101
  9. ONDANSETRON [Concomitant]
     Active Substance: ONDANSETRON
     Dosage: 8 MG, ONCE
     Route: 040
     Dates: start: 20241101, end: 20241101
  10. KETOPROFEN [Suspect]
     Active Substance: KETOPROFEN
     Dosage: 100 MG, ONCE
     Route: 040
     Dates: start: 20241101, end: 20241101

REACTIONS (2)
  - Pulmonary oedema [Recovering/Resolving]
  - Acute respiratory distress syndrome [Recovering/Resolving]

NARRATIVE: CASE EVENT DATE: 20241101
